FAERS Safety Report 12091585 (Version 1)
Quarter: 2016Q1

REPORT INFORMATION
  Report Type: Not Available
  Country: JP (occurrence: JP)
  Receive Date: 20160218
  Receipt Date: 20160218
  Transmission Date: 20160526
  Serious: Yes (Other)
  Sender: FDA-Public Use
  Company Number: US-AKORN-24897

PATIENT
  Age: 71 Year
  Sex: Male

DRUGS (1)
  1. ZIOPTAN [Suspect]
     Active Substance: TAFLUPROST

REACTIONS (4)
  - Anal fistula [None]
  - Amaurosis fugax [None]
  - Optic neuritis [None]
  - Nasopharyngitis [None]

NARRATIVE: CASE EVENT DATE: 20131004
